FAERS Safety Report 13698520 (Version 2)
Quarter: 2017Q3

REPORT INFORMATION
  Report Type: Spontaneous
  Country: JP (occurrence: JP)
  Receive Date: 20170628
  Receipt Date: 20170721
  Transmission Date: 20171127
  Serious: Yes (Other)
  Sender: FDA-Public Use
  Company Number: PHJP2017JP019378

PATIENT
  Age: 73 Year
  Sex: Male

DRUGS (2)
  1. GLIVEC [Suspect]
     Active Substance: IMATINIB MESYLATE
     Dosage: 300 MG, UNK
     Route: 048
     Dates: start: 20170711, end: 20170718
  2. GLIVEC [Suspect]
     Active Substance: IMATINIB MESYLATE
     Indication: GASTROINTESTINAL STROMAL TUMOUR
     Dosage: 400 MG, UNK
     Route: 048
     Dates: start: 20170404, end: 20170613

REACTIONS (8)
  - Pruritus [Recovered/Resolved]
  - Platelet count decreased [Recovered/Resolved]
  - Dry skin [Recovered/Resolved]
  - Eosinophil percentage increased [Not Recovered/Not Resolved]
  - Skin hypertrophy [Recovered/Resolved]
  - Eyelid oedema [Recovered/Resolved]
  - White blood cell count decreased [Recovered/Resolved]
  - Conjunctivitis [Unknown]

NARRATIVE: CASE EVENT DATE: 201705
